FAERS Safety Report 14311043 (Version 1)
Quarter: 2017Q4

REPORT INFORMATION
  Report Type: Spontaneous
  Country: US (occurrence: US)
  Receive Date: 20171221
  Receipt Date: 20171221
  Transmission Date: 20180321
  Serious: No
  Sender: FDA-Public Use
  Company Number: US-SA-2017SA064717

PATIENT
  Age: 75 Year
  Sex: Female

DRUGS (2)
  1. PLAVIX [Suspect]
     Active Substance: CLOPIDOGREL BISULFATE
     Route: 065
  2. HUMIRA [Suspect]
     Active Substance: ADALIMUMAB
     Indication: PSORIATIC ARTHROPATHY
     Route: 058
     Dates: start: 20160818

REACTIONS (17)
  - Gingival bleeding [Unknown]
  - Dysstasia [Unknown]
  - Psoriasis [Unknown]
  - Unevaluable event [Unknown]
  - Loss of personal independence in daily activities [Unknown]
  - Pain [Unknown]
  - Joint swelling [Unknown]
  - Joint stiffness [Unknown]
  - Tenderness [Unknown]
  - Blood creatinine increased [Unknown]
  - Drug effect incomplete [Unknown]
  - Oedema peripheral [Unknown]
  - Gait disturbance [Unknown]
  - Balance disorder [Unknown]
  - Injection site bruising [Unknown]
  - Inappropriate schedule of drug administration [Unknown]
  - Discomfort [Unknown]

NARRATIVE: CASE EVENT DATE: 2016
